FAERS Safety Report 24428755 (Version 1)
Quarter: 2024Q4

REPORT INFORMATION
  Report Type: Spontaneous
  Country: IT (occurrence: IT)
  Receive Date: 20241011
  Receipt Date: 20241011
  Transmission Date: 20250115
  Serious: Yes (Death)
  Sender: REGENERON
  Company Number: None

PATIENT
  Age: 74 Year
  Sex: Male

DRUGS (1)
  1. CEMIPLIMAB [Suspect]
     Active Substance: CEMIPLIMAB
     Indication: Squamous cell carcinoma
     Dosage: 350 MG OGNI 21 GIORNI
     Route: 065
     Dates: start: 20240809, end: 20240809

REACTIONS (2)
  - Myopathy [Fatal]
  - Myasthenic syndrome [Fatal]

NARRATIVE: CASE EVENT DATE: 20240831
